FAERS Safety Report 8579101-2 (Version None)
Quarter: 2012Q3

REPORT INFORMATION
  Report Type: 
  Country: None (occurrence: None)
  Receive Date: 20120808
  Receipt Date: 20120803
  Transmission Date: 20120928
  Serious: Yes (Hospitalization)
  Sender: FDA-Public Use
  Company Number: FR-PFIZER INC-2012188689

PATIENT
  Age: 97 Year
  Sex: Female

DRUGS (5)
  1. FELDENE [Suspect]
     Dosage: UNK
     Dates: start: 20120613, end: 20120614
  2. BISOPROLOL FUMARATE AND HYDROCHLOROTHIAZIDE [Concomitant]
  3. SPASFON [Concomitant]
  4. AMLODIPINE BESYLATE [Suspect]
     Dosage: UNK
     Route: 048
  5. OFLOXACIN [Suspect]
     Dosage: 2 DF, DAILY
     Route: 048
     Dates: start: 20120608, end: 20120613

REACTIONS (3)
  - OEDEMA PERIPHERAL [None]
  - BLOOD CREATINE PHOSPHOKINASE INCREASED [None]
  - PAIN IN EXTREMITY [None]
